FAERS Safety Report 4557334-X (Version None)
Quarter: 2005Q1

REPORT INFORMATION
  Report Type: 
  Country: None (occurrence: None)
  Receive Date: 20050119
  Receipt Date: 20050119
  Transmission Date: 20050727
  Serious: Yes (Disabling)
  Sender: FDA-Public Use
  Company Number: None

PATIENT
  Sex: Female
  Weight: 66.7 kg

DRUGS (8)
  1. SYNERCID [Suspect]
     Indication: ENDOCARDITIS STAPHYLOCOCCAL
     Dosage: 500MG   Q8H   INTRAVENOU
     Route: 042
     Dates: start: 20050110, end: 20050117
  2. NAVALBINE [Concomitant]
  3. TAXOL [Concomitant]
  4. DECADRON [Concomitant]
  5. PREVACID [Concomitant]
  6. NEUPOGEN [Concomitant]
  7. MORPHINE SULFATE [Concomitant]
  8. INSULIN [Concomitant]

REACTIONS (4)
  - ARTHRALGIA [None]
  - DYSSTASIA [None]
  - MYALGIA [None]
  - OEDEMA PERIPHERAL [None]
